FAERS Safety Report 14934863 (Version 1)
Quarter: 2018Q2

REPORT INFORMATION
  Report Type: Spontaneous
  Country: US (occurrence: US)
  Receive Date: 20180524
  Receipt Date: 20180524
  Transmission Date: 20180711
  Serious: Yes (Hospitalization)
  Sender: FDA-Public Use
  Company Number: US-VERTEX PHARMACEUTICALS-2018-003395

PATIENT
  Age: 25 Year
  Sex: Male

DRUGS (10)
  1. VITAMIN A                          /00056001/ [Concomitant]
     Active Substance: RETINOL
  2. ORKAMBI [Suspect]
     Active Substance: IVACAFTOR\LUMACAFTOR
     Indication: CYSTIC FIBROSIS
     Dosage: 2 TABLETS (200/125 MG EACH), BID
     Route: 048
     Dates: start: 2017
  3. MEPHYTON [Concomitant]
     Active Substance: PHYTONADIONE
  4. VITAMIN E                          /00110501/ [Concomitant]
     Active Substance: TOCOPHEROL
  5. AZITHROMYCIN ANHYDROUS. [Concomitant]
     Active Substance: AZITHROMYCIN ANHYDROUS
  6. NEXIUM [Concomitant]
     Active Substance: ESOMEPRAZOLE MAGNESIUM
  7. PULMOZYME [Concomitant]
     Active Substance: DORNASE ALFA
  8. BOOST [Concomitant]
     Active Substance: DIETARY SUPPLEMENT
  9. KITABIS PAK [Concomitant]
     Active Substance: TOBRAMYCIN
  10. MVW COMPLETE FORMULATION D3000 [Concomitant]

REACTIONS (1)
  - Hospitalisation [Not Recovered/Not Resolved]

NARRATIVE: CASE EVENT DATE: 2018
